FAERS Safety Report 4465199-X (Version None)
Quarter: 2004Q4

REPORT INFORMATION
  Report Type: 
  Country: None (occurrence: None)
  Receive Date: 20041004
  Receipt Date: 20040813
  Transmission Date: 20050328
  Serious: Yes (Other)
  Sender: FDA-Public Use
  Company Number: JP-ABBOTT-04P-087-0270766-00

PATIENT
  Age: 62 Year
  Sex: Female

DRUGS (2)
  1. LIPANTIL CAPSULES [Suspect]
     Indication: HYPERLIPIDAEMIA
     Route: 048
     Dates: start: 20000601, end: 20040605
  2. AMLODIPINE BESYLATE [Concomitant]
     Indication: DRUG USE FOR UNKNOWN INDICATION
     Dates: start: 19970107, end: 20000601

REACTIONS (2)
  - GRANULOCYTOPENIA [None]
  - VIRAL INFECTION [None]
